FAERS Safety Report 7407137-3 (Version None)
Quarter: 2011Q2

REPORT INFORMATION
  Report Type: 
  Country: None (occurrence: None)
  Receive Date: 20110411
  Receipt Date: 20110317
  Transmission Date: 20111010
  Serious: No
  Sender: FDA-Public Use
  Company Number: US-B.I. PHARMACEUTICALS,INC./RIDGEFIELD-2011-BP-08377BP

PATIENT
  Age: 75 Year
  Sex: Female
  Weight: 54.5 kg

DRUGS (2)
  1. SPIRIVA [Suspect]
     Dates: start: 20101201
  2. VITAMINS [Concomitant]

REACTIONS (3)
  - RESTLESS LEGS SYNDROME [None]
  - DRUG INEFFECTIVE [None]
  - RASH [None]
